FAERS Safety Report 10169547 (Version 1)
Quarter: 2014Q2

REPORT INFORMATION
  Report Type: Spontaneous
  Country: US (occurrence: US)
  Receive Date: 20140513
  Receipt Date: 20140513
  Transmission Date: 20141212
  Serious: Yes (Hospitalization, Other)
  Sender: FDA-Public Use
  Company Number: US-ACTAVIS-2014-09448

PATIENT
  Age: 21 Year
  Sex: Male
  Weight: 41 kg

DRUGS (6)
  1. CLARITHROMYCIN (UNKNOWN) [Suspect]
     Indication: MYCOBACTERIUM AVIUM COMPLEX INFECTION
     Dosage: 1000 MG, BID
     Route: 065
  2. FLUCONAZOLE (UNKNOWN) [Interacting]
     Indication: PRODUCT USED FOR UNKNOWN INDICATION
     Dosage: 100 MG, DAILY
     Route: 065
  3. LOXAPINE (WATSON LABORATORIES) [Suspect]
     Indication: MANIA
     Dosage: 10 MG, QPM
     Route: 065
  4. PENTAMIDINE [Concomitant]
     Indication: PRODUCT USED FOR UNKNOWN INDICATION
     Dosage: 300 MG, ONCE A MONTH
     Route: 055
  5. ACYCLOVIR                          /00587301/ [Concomitant]
     Indication: PRODUCT USED FOR UNKNOWN INDICATION
     Dosage: 200 MG, BID
     Route: 065
  6. ACETAMINOPHEN W/CODEINE [Concomitant]
     Indication: PAIN
     Dosage: UNK, AS NEEDED
     Route: 065
     Dates: start: 19911004

REACTIONS (4)
  - Mania [Recovered/Resolved]
  - Psychotic disorder [Recovered/Resolved]
  - Dystonia [Recovered/Resolved]
  - Drug interaction [Unknown]
